APPROVED DRUG PRODUCT: DEMULEN 1/50-21
Active Ingredient: ETHINYL ESTRADIOL; ETHYNODIOL DIACETATE
Strength: 0.05MG;1MG
Dosage Form/Route: TABLET;ORAL-21
Application: N016927 | Product #001
Applicant: GD SEARLE LLC
Approved: Approved Prior to Jan 1, 1982 | RLD: No | RS: No | Type: DISCN